FAERS Safety Report 17436682 (Version 2)
Quarter: 2020Q1

REPORT INFORMATION
  Report Type: Spontaneous
  Country: US (occurrence: US)
  Receive Date: 20200219
  Receipt Date: 20200323
  Transmission Date: 20200409
  Serious: Yes (Hospitalization)
  Sender: FDA-Public Use
  Company Number: US-SA-2020SA042051

PATIENT
  Age: 34 Year
  Sex: Male

DRUGS (1)
  1. DUPIXENT [Suspect]
     Active Substance: DUPILUMAB
     Indication: DERMATITIS ALLERGIC
     Dosage: 300 MG, QOW
     Route: 058
     Dates: start: 2019

REACTIONS (6)
  - Back pain [Unknown]
  - Product dose omission [Unknown]
  - Hospitalisation [Unknown]
  - Muscle spasms [Unknown]
  - Confusional state [Unknown]
  - Muscle twitching [Unknown]

NARRATIVE: CASE EVENT DATE: 202001
